FAERS Safety Report 7712331-8 (Version None)
Quarter: 2011Q3

REPORT INFORMATION
  Report Type: 
  Country: None (occurrence: None)
  Receive Date: 20110826
  Receipt Date: 20110818
  Transmission Date: 20111222
  Serious: Yes (Death, Hospitalization, Disabling)
  Sender: FDA-Public Use
  Company Number: JP-ROCHE-735374

PATIENT
  Sex: Male

DRUGS (3)
  1. CISPLATIN [Suspect]
     Indication: LUNG ADENOCARCINOMA METASTATIC
     Route: 041
     Dates: start: 20100607, end: 20100819
  2. PEMETREXED [Suspect]
     Indication: LUNG ADENOCARCINOMA METASTATIC
     Route: 041
     Dates: start: 20100607, end: 20100819
  3. AVASTIN [Suspect]
     Indication: LUNG ADENOCARCINOMA METASTATIC
     Dosage: NOTE: DOSAGE WAS UNCERTAIN.
     Route: 041
     Dates: start: 20100607, end: 20100915

REACTIONS (6)
  - DISSEMINATED INTRAVASCULAR COAGULATION [None]
  - INTERSTITIAL LUNG DISEASE [None]
  - CEREBRAL INFARCTION [None]
  - WHITE BLOOD CELL COUNT DECREASED [None]
  - DISEASE PROGRESSION [None]
  - FEBRILE NEUTROPENIA [None]
